FAERS Safety Report 6244724-2 (Version None)
Quarter: 2009Q2

REPORT INFORMATION
  Report Type: 
  Country: None (occurrence: None)
  Receive Date: 20090623
  Receipt Date: 20090623
  Transmission Date: 20091009
  Serious: Yes (Hospitalization)
  Sender: FDA-Public Use
  Company Number: None

PATIENT
  Age: 72 Year
  Sex: Female
  Weight: 74.9 kg

DRUGS (8)
  1. COUMADIN [Suspect]
     Indication: AORTIC VALVE REPLACEMENT
     Dosage: 7.5/325 MWF/TTHSS PO CHRONIC
     Route: 048
  2. BETA-VAL [Concomitant]
  3. CARTIA XT [Concomitant]
  4. CEFUROXIME [Concomitant]
  5. DIGOXIN [Concomitant]
  6. FLUTICASONE [Concomitant]
  7. SYNTHROID [Concomitant]
  8. VICODIN [Concomitant]

REACTIONS (9)
  - CONTUSION [None]
  - COUGH [None]
  - INTERNATIONAL NORMALISED RATIO DECREASED [None]
  - MASS [None]
  - MUSCLE HAEMORRHAGE [None]
  - PAIN [None]
  - RECTAL HAEMORRHAGE [None]
  - RHINITIS ALLERGIC [None]
  - UPPER RESPIRATORY TRACT INFECTION [None]
